FAERS Safety Report 6969035-9 (Version None)
Quarter: 2010Q3

REPORT INFORMATION
  Report Type: 
  Country: None (occurrence: None)
  Receive Date: 20100903
  Receipt Date: 20100903
  Transmission Date: 20110219
  Serious: Yes (Life-Threatening, Hospitalization, Disabling)
  Sender: FDA-Public Use
  Company Number: None

PATIENT
  Age: 66 Year
  Sex: Male
  Weight: 81.6475 kg

DRUGS (2)
  1. LIPITOR [Suspect]
     Indication: BLOOD CHOLESTEROL INCREASED
     Dosage: 20 MG ONE PER DAY PO
     Route: 048
     Dates: start: 20100716, end: 20100723
  2. PREDNISONE [Concomitant]

REACTIONS (11)
  - BLOOD CREATININE INCREASED [None]
  - DEHYDRATION [None]
  - DEPRESSION [None]
  - DISORIENTATION [None]
  - HAEMORRHAGE SUBCUTANEOUS [None]
  - MYOPATHY [None]
  - NAUSEA [None]
  - PRURITUS [None]
  - PURPURA [None]
  - RED BLOOD CELLS URINE [None]
  - SWELLING [None]
